FAERS Safety Report 6589832-1 (Version None)
Quarter: 2010Q1

REPORT INFORMATION
  Report Type: 
  Country: None (occurrence: None)
  Receive Date: 20100219
  Receipt Date: 20100209
  Transmission Date: 20100710
  Serious: Yes (Other)
  Sender: FDA-Public Use
  Company Number: US-JNJFOC-20100102434

PATIENT
  Age: 62 Year
  Sex: Female
  Weight: 74.84 kg

DRUGS (5)
  1. TYLENOL ARTHRITIS PAIN ER [Suspect]
     Indication: ARTHRALGIA
     Route: 048
  2. TYLENOL ARTHRITIS PAIN ER [Suspect]
     Indication: ARTHRITIS
     Route: 048
  3. GLYBURIDE [Concomitant]
     Indication: DIABETES MELLITUS
  4. DYAZIDE [Concomitant]
     Indication: HYPERTENSION
  5. VITAMINS NOS [Concomitant]
     Indication: VITAMIN SUPPLEMENTATION

REACTIONS (6)
  - ABDOMINAL PAIN UPPER [None]
  - DIARRHOEA [None]
  - MUSCLE SPASMS [None]
  - NAUSEA [None]
  - PRODUCT QUALITY ISSUE [None]
  - VERTIGO [None]
